FAERS Safety Report 8515676-7 (Version None)
Quarter: 2012Q3

REPORT INFORMATION
  Report Type: 
  Country: None (occurrence: None)
  Receive Date: 20120717
  Receipt Date: 20120712
  Transmission Date: 20120928
  Serious: Yes (Hospitalization)
  Sender: FDA-Public Use
  Company Number: PHHY2012CA046017

PATIENT
  Sex: Female

DRUGS (10)
  1. HYDROXYCHLOROQUINE SULFATE [Concomitant]
     Dosage: 400 UKN, UNK
  2. MYFORTIC [Suspect]
     Indication: LUPUS NEPHRITIS
     Dosage: 360 MG, BID
     Route: 048
     Dates: start: 20111201, end: 20120201
  3. ADALAT [Concomitant]
     Dosage: UNK UKN, UNK
  4. VITAMIN D [Concomitant]
     Dosage: UNK UKN, UNK
  5. IRON [Concomitant]
     Dosage: 300 UKN, UNK
  6. MYFORTIC [Suspect]
     Dosage: 180 MG
     Route: 048
     Dates: start: 20120201, end: 20120201
  7. PREDNISONE [Concomitant]
     Dosage: 60 UKN, UNK
  8. CALCIUM [Concomitant]
     Dosage: 1250 UKN, UNK
  9. PANTOPRAZOLE SODIUM [Concomitant]
     Dosage: 40 UKN, UNK
  10. RAMIPRIL [Concomitant]
     Dosage: 10 UKN, UNK

REACTIONS (20)
  - STEVENS-JOHNSON SYNDROME [None]
  - GENITAL ULCERATION [None]
  - VAGINAL HAEMORRHAGE [None]
  - ERYTHEMA [None]
  - VULVOVAGINAL RASH [None]
  - SWELLING FACE [None]
  - LIP SWELLING [None]
  - PAIN [None]
  - LOWER LIMB FRACTURE [None]
  - THERMAL BURN [None]
  - EYE SWELLING [None]
  - EPISTAXIS [None]
  - RASH GENERALISED [None]
  - SKIN EXFOLIATION [None]
  - EAR HAEMORRHAGE [None]
  - RASH [None]
  - BURNING SENSATION [None]
  - ALOPECIA [None]
  - MOUTH HAEMORRHAGE [None]
  - DRUG HYPERSENSITIVITY [None]
